FAERS Safety Report 5303296-7 (Version None)
Quarter: 2007Q2

REPORT INFORMATION
  Report Type: 
  Country: None (occurrence: None)
  Receive Date: 20070420
  Receipt Date: 20070413
  Transmission Date: 20071010
  Serious: Yes (Disabling)
  Sender: FDA-Public Use
  Company Number: JP-JPN-A200701071

PATIENT
  Age: 77 Year
  Sex: Female

DRUGS (9)
  1. VALTREX [Suspect]
     Indication: HERPES ZOSTER
     Dosage: 1000MG THREE TIMES PER DAY
     Route: 048
     Dates: start: 20070228, end: 20070301
  2. ZOVIRAX [Concomitant]
     Indication: HERPES ZOSTER
     Route: 042
     Dates: start: 20070302, end: 20070306
  3. ARASENA-A [Concomitant]
     Indication: HERPES ZOSTER
     Route: 061
     Dates: start: 20070302, end: 20070319
  4. JAPANESE MEDICATION [Concomitant]
     Indication: HERPES ZOSTER
     Route: 048
     Dates: start: 20070303, end: 20070308
  5. LOXONIN [Concomitant]
     Indication: NEURALGIA
     Route: 048
     Dates: start: 20070305, end: 20070309
  6. POLARAMINE [Concomitant]
     Indication: PRURITUS
     Route: 048
     Dates: start: 20070305, end: 20070331
  7. ACUATIM [Concomitant]
     Indication: FOLLICULITIS
     Route: 061
     Dates: start: 20070306
  8. TRAMADOL HCL [Concomitant]
     Indication: HERPES ZOSTER
     Route: 061
     Dates: start: 20070320
  9. INSULIN [Concomitant]
     Indication: DIABETES MELLITUS
     Route: 058

REACTIONS (3)
  - FEELING ABNORMAL [None]
  - NAUSEA [None]
  - VOMITING [None]
